FAERS Safety Report 9408952 (Version 1)
Quarter: 2013Q3

REPORT INFORMATION
  Report Type: Spontaneous
  Country: DE (occurrence: DE)
  Receive Date: 20130719
  Receipt Date: 20130719
  Transmission Date: 20140515
  Serious: Yes (Life-Threatening, Hospitalization, Other)
  Sender: FDA-Public Use
  Company Number: DE-RANBAXY-2013RR-70380

PATIENT
  Age: 60 Year
  Sex: Male

DRUGS (5)
  1. RAMIPRIL [Suspect]
     Indication: HYPERTENSION
     Dosage: UNK
     Route: 065
  2. CEFUROXIME [Suspect]
     Indication: PRODUCT USED FOR UNKNOWN INDICATION
     Dosage: 1500 MG
     Route: 042
  3. ETOMIDATE [Suspect]
     Indication: INDUCTION OF ANAESTHESIA
     Dosage: 20 MG
     Route: 065
  4. SUFENTANIL [Suspect]
     Indication: INDUCTION OF ANAESTHESIA
     Dosage: 50 UG
     Route: 065
  5. ATRACURIUM [Suspect]
     Indication: INDUCTION OF ANAESTHESIA
     Dosage: 50 MG
     Route: 065

REACTIONS (8)
  - Anaphylactic reaction [Recovering/Resolving]
  - Shock [Recovering/Resolving]
  - Angioedema [Recovering/Resolving]
  - Disseminated intravascular coagulation [Recovering/Resolving]
  - Fibrinolysis increased [Recovering/Resolving]
  - Capillary leak syndrome [Recovering/Resolving]
  - Multi-organ failure [Recovering/Resolving]
  - Hypertension [Recovering/Resolving]
